FAERS Safety Report 14056122 (Version 1)
Quarter: 2017Q4

REPORT INFORMATION
  Report Type: Spontaneous
  Country: PL (occurrence: PL)
  Receive Date: 20171006
  Receipt Date: 20171006
  Transmission Date: 20180321
  Serious: Yes (Other)
  Sender: FDA-Public Use
  Company Number: PHHY2017PL141389

PATIENT
  Age: 17 Year
  Sex: Male

DRUGS (5)
  1. LANREOTIDE [Suspect]
     Active Substance: LANREOTIDE
     Indication: PRODUCT USED FOR UNKNOWN INDICATION
     Dosage: UNK
     Route: 065
     Dates: start: 20160414, end: 20170810
  2. AFINITOR [Suspect]
     Active Substance: EVEROLIMUS
     Indication: PANCREATIC NEUROENDOCRINE TUMOUR
     Dosage: UNK
     Route: 065
     Dates: start: 20130807
  3. AFINITOR [Suspect]
     Active Substance: EVEROLIMUS
     Dosage: 5 MG, UNK
     Route: 065
     Dates: start: 20170811, end: 20170908
  4. SANDOSTATIN LAR DEPOT [Suspect]
     Active Substance: OCTREOTIDE ACETATE
     Dosage: 30 MG, UNK
     Route: 065
     Dates: start: 20130807, end: 20160311
  5. SANDOSTATIN LAR DEPOT [Suspect]
     Active Substance: OCTREOTIDE ACETATE
     Indication: PANCREATIC NEUROENDOCRINE TUMOUR
     Dosage: 20 MG, UNK
     Route: 065
     Dates: start: 20130109

REACTIONS (8)
  - Thrombocytopenia [Unknown]
  - Product use issue [Unknown]
  - Ileus [Recovered/Resolved]
  - Adhesion [Unknown]
  - Malignant neoplasm progression [Unknown]
  - Lymphadenopathy [Unknown]
  - Fat tissue increased [Unknown]
  - Hepatotoxicity [Unknown]

NARRATIVE: CASE EVENT DATE: 201308
